FAERS Safety Report 20069437 (Version 2)
Quarter: 2022Q1

REPORT INFORMATION
  Report Type: Spontaneous
  Country: US (occurrence: US)
  Receive Date: 20211115
  Receipt Date: 20220121
  Transmission Date: 20220424
  Serious: No
  Sender: FDA-Public Use
  Company Number: US-ALNYLAM PHARMACEUTICALS, INC.-ALN-2021-002899

PATIENT

DRUGS (2)
  1. GIVLAARI [Suspect]
     Active Substance: GIVOSIRAN SODIUM
     Indication: Product used for unknown indication
     Dosage: INJECTION
     Route: 065
  2. PANHEMATIN [Suspect]
     Active Substance: HEMIN
     Indication: Product used for unknown indication

REACTIONS (12)
  - Peripheral swelling [Unknown]
  - Unevaluable event [Unknown]
  - Injection site reaction [Unknown]
  - Porphyria acute [Unknown]
  - Weight increased [Unknown]
  - Muscle spasms [Unknown]
  - Nausea [Unknown]
  - Hepatic function abnormal [Unknown]
  - Renal impairment [Unknown]
  - Blood test abnormal [Unknown]
  - Malaise [Unknown]
  - Therapy interrupted [Unknown]
